FAERS Safety Report 9279939 (Version 1)
Quarter: 2013Q2

REPORT INFORMATION
  Report Type: Spontaneous
  Country: US (occurrence: US)
  Receive Date: 20130509
  Receipt Date: 20130509
  Transmission Date: 20140414
  Serious: No
  Sender: FDA-Public Use
  Company Number: US-009507513-1305USA002711

PATIENT
  Age: 2 Year
  Sex: Male
  Weight: 13 kg

DRUGS (11)
  1. NOXAFIL [Suspect]
     Indication: ZYGOMYCOSIS
     Dosage: 100 MG, Q6H; IN 30 ML OF HEAVY WHIPPING CREAM
     Route: 048
  2. NOXAFIL [Suspect]
     Dosage: 150 MG, Q6H, ON DAY 22
     Route: 048
  3. NOXAFIL [Suspect]
     Dosage: 200 MG, Q6H, ON DAY 36
     Route: 048
  4. AMPHOTERICIN B [Suspect]
     Indication: ZYGOMYCOSIS
     Dosage: 5 MG/KG, QD
     Route: 042
  5. AMPHOTERICIN B [Suspect]
     Dosage: 10 MG/KG, QD
     Route: 042
  6. AMPHOTERICIN B [Suspect]
     Dosage: 15 MG/KG, QD
     Route: 042
  7. AMPHOTERICIN B [Suspect]
     Dosage: 7.5 MG/KG, QD
     Route: 042
  8. CASPOFUNGIN ACETATE [Suspect]
     Indication: ZYGOMYCOSIS
     Dosage: 70 MG/M2, QD, STARTED ON DAY 19
     Route: 042
  9. FILGRASTIM [Concomitant]
     Dosage: 5 MICROGRAM PER KILOGRAM, QD, ON DAY 23
     Route: 042
  10. LEVETIRACETAM [Concomitant]
     Indication: CONVULSION PROPHYLAXIS
     Dosage: 65 MG, BID, ON DAY 34
  11. MERCAPTOPURINE (+) METHOTREXATE [Concomitant]
     Indication: LEUKAEMIA
     Dosage: CHEMOTHERAPY

REACTIONS (5)
  - Hypertension [Unknown]
  - Nausea [Unknown]
  - Vomiting [Unknown]
  - Drug administration error [Unknown]
  - Off label use [Unknown]
